FAERS Safety Report 6928020-3 (Version None)
Quarter: 2010Q3

REPORT INFORMATION
  Report Type: 
  Country: None (occurrence: None)
  Receive Date: 20100817
  Receipt Date: 20100812
  Transmission Date: 20110219
  Serious: Yes (Life-Threatening)
  Sender: FDA-Public Use
  Company Number: GB-ELI_LILLY_AND_COMPANY-GB201006004002

PATIENT
  Sex: Male
  Weight: 82.3 kg

DRUGS (7)
  1. BYETTA [Suspect]
     Indication: TYPE 2 DIABETES MELLITUS
     Dosage: 5 UG, 2/D
     Route: 065
     Dates: start: 20091126, end: 20100204
  2. BYETTA [Suspect]
     Dosage: 10 UG, 2/D
     Route: 065
     Dates: start: 20100204, end: 20100617
  3. METFORMIN [Concomitant]
     Indication: TYPE 2 DIABETES MELLITUS
     Dosage: 1000 MG, 2/D
     Route: 065
     Dates: start: 20100617
  4. SUSTANON 250 [Concomitant]
     Indication: BILATERAL ORCHIDECTOMY
     Dosage: 250 MG, 3/W
  5. BENZOFIBRATE [Concomitant]
     Indication: LIPIDS INCREASED
     Dosage: 400 MG, DAILY (1/D)
     Route: 048
  6. ATORVASTATIN [Concomitant]
     Indication: LIPIDS INCREASED
     Dosage: 20 MG, DAILY (1/D)
     Route: 048
  7. ADCAL [Concomitant]
     Indication: CALCIUM DEFICIENCY
     Dosage: UNK, DAILY (1/D)
     Route: 065

REACTIONS (3)
  - DEHYDRATION [None]
  - DIZZINESS [None]
  - RENAL FAILURE ACUTE [None]
